FAERS Safety Report 18733840 (Version 3)
Quarter: 2021Q2

REPORT INFORMATION
  Report Type: Report from Study
  Country: GB (occurrence: GB)
  Receive Date: 20210113
  Receipt Date: 20210625
  Transmission Date: 20210717
  Serious: Yes (Other)
  Sender: FDA-Public Use
  Company Number: GB-TAKEDA-2020TUS043706

PATIENT
  Age: 80 Year
  Sex: Female

DRUGS (1)
  1. VEDOLIZUMAB [Suspect]
     Active Substance: VEDOLIZUMAB
     Indication: CROHN^S DISEASE
     Dosage: 108 MILLIGRAM, Q2WEEKS
     Route: 058
     Dates: start: 20201030

REACTIONS (2)
  - Kidney infection [Unknown]
  - Urinary tract infection [Unknown]
